FAERS Safety Report 16665133 (Version 1)
Quarter: 2019Q3

REPORT INFORMATION
  Report Type: Spontaneous
  Country: NO (occurrence: NO)
  Receive Date: 20190803
  Receipt Date: 20190803
  Transmission Date: 20191004
  Serious: Yes (Congenital Anomaly, Other)
  Sender: FDA-Public Use
  Company Number: NO-ACCORD-150026

PATIENT

DRUGS (2)
  1. LEVETIRACETAM. [Suspect]
     Active Substance: LEVETIRACETAM
     Indication: EPILEPSY
     Dosage: 1000 MG, DAILY
     Route: 064
  2. LEVETIRACETAM. [Suspect]
     Active Substance: LEVETIRACETAM
     Dosage: DOSE CHANGE IN 1ST TRIISTER
     Route: 064
     Dates: end: 201410

REACTIONS (3)
  - Foetal exposure during pregnancy [Unknown]
  - Cytogenetic abnormality [Not Recovered/Not Resolved]
  - Laryngomalacia [Not Recovered/Not Resolved]
